FAERS Safety Report 6641386-7 (Version None)
Quarter: 2010Q1

REPORT INFORMATION
  Report Type: 
  Country: None (occurrence: None)
  Receive Date: 20100318
  Receipt Date: 20100315
  Transmission Date: 20100710
  Serious: Yes (Hospitalization)
  Sender: FDA-Public Use
  Company Number: US-ROCHE-679419

PATIENT
  Sex: Male
  Weight: 64.5 kg

DRUGS (7)
  1. TOCILIZUMAB [Suspect]
     Indication: RHEUMATOID ARTHRITIS
     Dosage: STARTING DOSE: 64.5 MG/KG
     Route: 042
     Dates: start: 20091118, end: 20091118
  2. TOCILIZUMAB [Suspect]
     Route: 042
     Dates: start: 20091216
  3. NABUMETONE [Concomitant]
     Route: 048
     Dates: start: 19990101
  4. PLAQUENIL [Concomitant]
     Indication: RHEUMATOID ARTHRITIS
     Route: 048
     Dates: start: 20090101
  5. LORTAB [Concomitant]
     Indication: RHEUMATOID ARTHRITIS
     Route: 048
     Dates: start: 20050101
  6. FLEXERIL [Concomitant]
     Route: 048
     Dates: start: 20040101
  7. PREDNISONE [Concomitant]
     Route: 048
     Dates: start: 20090619

REACTIONS (7)
  - BRONCHIECTASIS [None]
  - BRONCHITIS [None]
  - CHRONIC OBSTRUCTIVE PULMONARY DISEASE [None]
  - EMPHYSEMA [None]
  - HAEMOPTYSIS [None]
  - PHARYNGEAL ULCERATION [None]
  - PNEUMONIA [None]
